FAERS Safety Report 24725183 (Version 1)
Quarter: 2024Q4

REPORT INFORMATION
  Report Type: Spontaneous
  Country: US (occurrence: US)
  Receive Date: 20241212
  Receipt Date: 20241212
  Transmission Date: 20250114
  Serious: No
  Sender: ROCHE
  Company Number: US-ROCHE-10000150802

PATIENT
  Sex: Female

DRUGS (2)
  1. XOLAIR PFS [Suspect]
     Active Substance: OMALIZUMAB
     Indication: Urticaria
     Dosage: STRENGTH: 150MG/ML
     Route: 058
     Dates: start: 202305
  2. XOLAIR PFS [Suspect]
     Active Substance: OMALIZUMAB

REACTIONS (2)
  - Maternal exposure during pregnancy [Unknown]
  - Maternal exposure before pregnancy [Unknown]
